FAERS Safety Report 10967348 (Version 1)
Quarter: 2015Q1

REPORT INFORMATION
  Report Type: Spontaneous
  Country: HR (occurrence: HR)
  Receive Date: 20150330
  Receipt Date: 20150330
  Transmission Date: 20150721
  Serious: Yes (Other)
  Sender: FDA-Public Use
  Company Number: HR-TEVA-550104ISR

PATIENT
  Age: 58 Year
  Sex: Male
  Weight: 85 kg

DRUGS (5)
  1. AMARYL [Concomitant]
     Active Substance: GLIMEPIRIDE
     Route: 048
  2. PIRAMIL [Concomitant]
     Route: 048
  3. MISAR [Concomitant]
     Dosage: .75 MILLIGRAM DAILY;
     Route: 048
  4. MELARTH [Suspect]
     Active Substance: MELOXICAM
     Indication: HYPERSENSITIVITY
     Dosage: 10 MILLIGRAM DAILY;
     Route: 048
     Dates: start: 20140909, end: 20140911
  5. ELICEA [Concomitant]
     Active Substance: ESCITALOPRAM OXALATE
     Indication: DEPRESSION
     Dosage: 10 MILLIGRAM DAILY;
     Route: 048

REACTIONS (6)
  - Off label use [Recovered/Resolved]
  - Suicidal ideation [Recovered/Resolved]
  - Nightmare [Recovered/Resolved]
  - Dyspnoea [Recovered/Resolved]
  - Chest pain [Recovered/Resolved]
  - Negative thoughts [Recovered/Resolved]

NARRATIVE: CASE EVENT DATE: 20140909
